FAERS Safety Report 5115835-X (Version None)
Quarter: 2006Q3

REPORT INFORMATION
  Report Type: 
  Country: None (occurrence: None)
  Receive Date: 20060925
  Receipt Date: 20060912
  Transmission Date: 20061208
  Serious: Yes (Other)
  Sender: FDA-Public Use
  Company Number: 2005066784

PATIENT
  Age: 60 Year
  Sex: Male
  Weight: 68.4932 kg

DRUGS (11)
  1. BEXTRA [Suspect]
     Indication: NECK PAIN
     Dosage: 20 MG (20 MG, PRN), ORAL
     Route: 048
     Dates: start: 20040901, end: 20050301
  2. CELEBREX [Suspect]
     Indication: NECK PAIN
     Dosage: (1 IN 1 AS NECESSARY), ORAL
     Route: 048
     Dates: start: 20050201
  3. CIPROFLOXACIN [Suspect]
     Indication: URINARY TRACT INFECTION
     Dosage: ORAL
     Route: 048
     Dates: start: 20050301, end: 20050301
  4. TRIMETHOPRIM + SULFAMETHOXAZOLE [Suspect]
     Indication: URINARY TRACT INFECTION
     Dosage: ORAL
     Route: 048
     Dates: start: 20050301, end: 20050301
  5. CHANTIX [Suspect]
     Indication: EX-SMOKER
     Dosage: 0.5 MG (0.5 MG, 1 IN 1 D)
     Dates: start: 20060905
  6. BECONASE [Suspect]
  7. FLONASE [Concomitant]
  8. ALLEGRA [Concomitant]
  9. ZANTAC [Concomitant]
  10. LIPITOR [Concomitant]
  11. LIBRIUM [Concomitant]

REACTIONS (18)
  - ABDOMINAL PAIN UPPER [None]
  - BUTTOCK PAIN [None]
  - DRUG DOSE OMISSION [None]
  - DRUG HYPERSENSITIVITY [None]
  - DRUG INEFFECTIVE [None]
  - ERYTHEMA [None]
  - INSOMNIA [None]
  - OEDEMA GENITAL [None]
  - PAIN IN EXTREMITY [None]
  - POLLAKIURIA [None]
  - PROSTATIC SPECIFIC ANTIGEN INCREASED [None]
  - RASH [None]
  - SKIN REACTION [None]
  - URINARY INCONTINENCE [None]
  - URINE ODOUR ABNORMAL [None]
  - URTICARIA [None]
  - WEIGHT DECREASED [None]
  - WEIGHT INCREASED [None]
